FAERS Safety Report 9747667 (Version 1)
Quarter: 2013Q4

REPORT INFORMATION
  Report Type: Spontaneous
  Country: ES (occurrence: None)
  Receive Date: 20131206
  Receipt Date: 20131206
  Transmission Date: 20140711
  Serious: Yes (Hospitalization)
  Sender: FDA-Public Use
  Company Number: FK201305203

PATIENT
  Age: 70 Year
  Sex: Male

DRUGS (2)
  1. OXALIPLATIN [Suspect]
     Indication: RECTAL ADENOCARCINOMA
     Dosage: INTRAVVENOUS (NOT OTHRWISE SPECIFIED)
     Dates: start: 20130429, end: 20130429
  2. CAPECITABINE (CAPECITABINE) (CAPECITABINE) [Concomitant]

REACTIONS (1)
  - Retinal vascular thrombosis [None]
